FAERS Safety Report 6042048-X (Version None)
Quarter: 2009Q1

REPORT INFORMATION
  Report Type: 
  Country: None (occurrence: None)
  Receive Date: 20090116
  Receipt Date: 20090111
  Transmission Date: 20090719
  Serious: Yes (Other)
  Sender: FDA-Public Use
  Company Number: US-ASTRAZENECA-2009UW01030

PATIENT
  Sex: Female

DRUGS (2)
  1. NEXIUM [Suspect]
     Route: 048
  2. PHENOBARBITAL TAB [Interacting]
     Indication: CONVULSION

REACTIONS (2)
  - CONVULSION [None]
  - DRUG INTERACTION [None]
